FAERS Safety Report 7757105-7 (Version None)
Quarter: 2011Q3

REPORT INFORMATION
  Report Type: 
  Country: None (occurrence: None)
  Receive Date: 20110916
  Receipt Date: 20110907
  Transmission Date: 20111222
  Serious: Yes (Hospitalization)
  Sender: FDA-Public Use
  Company Number: FR-BRISTOL-MYERS SQUIBB COMPANY-16058562

PATIENT
  Age: 67 Year
  Sex: Male
  Weight: 67 kg

DRUGS (3)
  1. GLUCOPHAGE [Suspect]
     Dosage: UNK-26MAY2011, 02JUN2011-22JUL2011 1DF-850MG TABS 2550 MG PER DAY
     Route: 048
     Dates: start: 20110602, end: 20110722
  2. NEXIUM [Concomitant]
     Indication: OESOPHAGITIS ULCERATIVE
     Route: 048
  3. JANUVIA [Suspect]
     Route: 048
     Dates: start: 20110401, end: 20110722

REACTIONS (2)
  - MIXED LIVER INJURY [None]
  - HEPATIC STEATOSIS [None]
